FAERS Safety Report 14892600 (Version 1)
Quarter: 2018Q2

REPORT INFORMATION
  Report Type: Spontaneous
  Country: US (occurrence: US)
  Receive Date: 20180514
  Receipt Date: 20180514
  Transmission Date: 20180711
  Serious: No
  Sender: FDA-Public Use
  Company Number: US-GLAXOSMITHKLINE-US2018081686

PATIENT
  Sex: Female

DRUGS (11)
  1. COREG [Concomitant]
     Active Substance: CARVEDILOL
  2. ASPIRIN (BABY) [Concomitant]
     Active Substance: ASPIRIN
  3. BETA-CAROTENE [Concomitant]
  4. ELIQUIS [Concomitant]
     Active Substance: APIXABAN
  5. SINGULAIR [Concomitant]
     Active Substance: MONTELUKAST SODIUM
  6. BENLYSTA [Suspect]
     Active Substance: BELIMUMAB
     Indication: SYSTEMIC LUPUS ERYTHEMATOSUS
     Dosage: UNK UNK, CYC
     Route: 041
     Dates: start: 20180416
  7. CELLCEPT [Concomitant]
     Active Substance: MYCOPHENOLATE MOFETIL\MYCOPHENOLATE MOFETIL HYDROCHLORIDE
  8. LASIX [Concomitant]
     Active Substance: FUROSEMIDE
  9. CORLANOR [Concomitant]
     Active Substance: IVABRADINE HYDROCHLORIDE
  10. PLAQUENIL [Concomitant]
     Active Substance: HYDROXYCHLOROQUINE SULFATE
  11. ZYRTEC [Concomitant]
     Active Substance: CETIRIZINE HYDROCHLORIDE

REACTIONS (1)
  - Alopecia [Not Recovered/Not Resolved]
